FAERS Safety Report 4939976-2 (Version None)
Quarter: 2006Q1

REPORT INFORMATION
  Report Type: 
  Country: None (occurrence: None)
  Receive Date: 20060307
  Receipt Date: 20060301
  Transmission Date: 20060701
  Serious: No
  Sender: FDA-Public Use
  Company Number: US-2004-029797

PATIENT
  Age: 62 Year
  Sex: Female
  Weight: 65.3 kg

DRUGS (22)
  1. CLIMARA [Suspect]
     Indication: HORMONE REPLACEMENT THERAPY
     Dosage: 0.05 MG/D, CONT, TRANSDERMAL
     Route: 062
     Dates: start: 19971101, end: 19990831
  2. PREMPRO [Suspect]
     Indication: HORMONE REPLACEMENT THERAPY
     Dosage: ORAL
     Route: 048
  3. PREMARIN [Suspect]
     Indication: HORMONE REPLACEMENT THERAPY
     Dosage: 0.625 MG, ORAL
     Route: 048
     Dates: start: 19901126, end: 20001101
  4. PROVERA [Suspect]
     Indication: HORMONE REPLACEMENT THERAPY
     Dosage: SEE IMAGE
     Dates: start: 19880101, end: 19911201
  5. PROVERA [Suspect]
     Indication: HORMONE REPLACEMENT THERAPY
     Dosage: SEE IMAGE
     Dates: start: 19911201, end: 20001101
  6. OGEN [Suspect]
     Indication: HORMONE REPLACEMENT THERAPY
  7. ESTRADERM [Suspect]
     Dosage: SEE IMAGE
     Dates: start: 19920311, end: 19930311
  8. ESTRADERM [Suspect]
     Dosage: SEE IMAGE
     Dates: end: 19940601
  9. CYCRIN [Suspect]
     Indication: HORMONE REPLACEMENT THERAPY
     Dosage: 2.5 MG
     Dates: start: 19971117, end: 19971217
  10. MEDROXYPROGESTERONE ACETATE [Suspect]
     Indication: HORMONE REPLACEMENT THERAPY
  11. ESTROGEN NOS (ESTROGEN  NOS) [Suspect]
     Indication: HORMONE REPLACEMENT THERAPY
  12. PREMARIN [Suspect]
     Dosage: 2%, VAGINAL
     Route: 067
     Dates: start: 19920311, end: 19970323
  13. PREDNISONE TAB [Concomitant]
  14. ACTIGALL [Concomitant]
  15. SULINDAC [Concomitant]
  16. HYDROCHLOROTHIAZIDE [Concomitant]
  17. SULFASALAZINE [Concomitant]
  18. ARAVA [Concomitant]
  19. HUMIRA [Concomitant]
  20. METHOTREXATE [Concomitant]
  21. FOSAMAX [Concomitant]
  22. ZETIA [Concomitant]

REACTIONS (14)
  - AORTIC VALVE STENOSIS [None]
  - ASTHENIA [None]
  - BREAST ATROPHY [None]
  - BREAST CANCER FEMALE [None]
  - DEPRESSION [None]
  - FATIGUE [None]
  - HEPATITIS [None]
  - HOT FLUSH [None]
  - HYPOAESTHESIA [None]
  - LOW DENSITY LIPOPROTEIN INCREASED [None]
  - METRORRHAGIA [None]
  - OESTROGEN RECEPTOR ASSAY POSITIVE [None]
  - PROCEDURAL PAIN [None]
  - STRESS [None]
